FAERS Safety Report 7988201-7 (Version None)
Quarter: 2011Q4

REPORT INFORMATION
  Report Type: 
  Country: None (occurrence: None)
  Receive Date: 20111216
  Receipt Date: 20101216
  Transmission Date: 20120403
  Serious: No
  Sender: FDA-Public Use
  Company Number: US-BRISTOL-MYERS SQUIBB COMPANY-15446107

PATIENT
  Age: 18 Year
  Sex: Male

DRUGS (4)
  1. DEPAKOTE [Concomitant]
  2. ABILIFY [Suspect]
     Dosage: TAKEN FOR 6-7MONTHS
  3. CONCERTA [Concomitant]
  4. WELLBUTRIN [Concomitant]

REACTIONS (1)
  - OCULOGYRIC CRISIS [None]
